FAERS Safety Report 26108477 (Version 1)
Quarter: 2025Q4

REPORT INFORMATION
  Report Type: Spontaneous
  Country: US (occurrence: US)
  Receive Date: 20251201
  Receipt Date: 20251201
  Transmission Date: 20260118
  Serious: No
  Sender: RANBAXY
  Company Number: US-MIMS-SUN-2025-USA-54900

PATIENT

DRUGS (1)
  1. ABSORICA LD [Suspect]
     Active Substance: ISOTRETINOIN
     Indication: Product used for unknown indication
     Dosage: 32 MG
     Route: 065

REACTIONS (1)
  - Product storage error [Unknown]
